FAERS Safety Report 4737503-6 (Version None)
Quarter: 2005Q3

REPORT INFORMATION
  Report Type: 
  Country: None (occurrence: None)
  Receive Date: 20050809
  Receipt Date: 20050721
  Transmission Date: 20060218
  Serious: No
  Sender: FDA-Public Use
  Company Number: US-GLAXOSMITHKLINE-A0567124A

PATIENT
  Age: 65 Year
  Sex: Female

DRUGS (3)
  1. COMMIT [Suspect]
     Dates: start: 20050719, end: 20050720
  2. ZESTRIL [Concomitant]
  3. PERCOCET [Concomitant]

REACTIONS (3)
  - BLOOD PRESSURE INCREASED [None]
  - GLOSSODYNIA [None]
  - ORAL DISCOMFORT [None]
